FAERS Safety Report 7654467-6 (Version None)
Quarter: 2011Q3

REPORT INFORMATION
  Report Type: 
  Country: None (occurrence: None)
  Receive Date: 20110803
  Receipt Date: 20110728
  Transmission Date: 20111222
  Serious: Yes (Hospitalization)
  Sender: FDA-Public Use
  Company Number: DE-GENENTECH-321130

PATIENT
  Sex: Female

DRUGS (14)
  1. PROCARBAZINE HYDROCHLORIDE [Suspect]
     Indication: HODGKIN'S DISEASE
     Dosage: 155 MG/M2, UNK
     Route: 065
     Dates: start: 20110620, end: 20110627
  2. ONDANSETRON [Concomitant]
     Indication: PRODUCT USED FOR UNKNOWN INDICATION
     Dosage: 8 MG, QAM
     Route: 042
     Dates: start: 20110620, end: 20110620
  3. ADRIAMYCIN PFS [Suspect]
     Indication: HODGKIN'S DISEASE
     Dosage: 54 MG/M2, UNK
     Route: 042
     Dates: start: 20110620
  4. ONDANSETRON [Concomitant]
     Dosage: 8 MG, QAM
     Route: 042
     Dates: start: 20110624
  5. DEXAMETHASONE [Concomitant]
     Indication: PRODUCT USED FOR UNKNOWN INDICATION
     Dosage: 12 MG, QAM
     Dates: start: 20110620, end: 20110620
  6. VINCRISTINE [Suspect]
     Indication: HODGKIN'S DISEASE
     Dosage: 2 MG/M2, UNK
     Route: 065
     Dates: start: 20110620, end: 20110627
  7. PREDNISONE [Suspect]
     Indication: HODGKIN'S DISEASE
     Dosage: 62 MG/M2, UNK
     Route: 065
     Dates: start: 20110530, end: 20110608
  8. DEXAMETHASONE [Concomitant]
     Dosage: 8 MG, QAM
     Dates: start: 20110621, end: 20110623
  9. EMEND [Concomitant]
     Indication: PRODUCT USED FOR UNKNOWN INDICATION
     Dosage: 125 MG, QAM
     Dates: start: 20110620, end: 20110620
  10. EMEND [Concomitant]
     Dosage: 80 MG, QAM
     Dates: start: 20110621, end: 20110623
  11. RITUXIMAB [Suspect]
     Indication: HODGKIN'S DISEASE
     Dosage: 581 MG/M2, UNK
     Route: 042
     Dates: start: 20110620
  12. ETOPOSIDE [Suspect]
     Indication: HODGKIN'S DISEASE
     Dosage: 271 MG/M2, UNK
     Route: 065
     Dates: start: 20110620, end: 20110623
  13. CYCLOPHOSPHAMIDE [Suspect]
     Indication: HODGKIN'S DISEASE
     Dosage: 1705 MG/M2, UNK
     Route: 065
     Dates: start: 20110530, end: 20110530
  14. BLEOMYCIN [Suspect]
     Indication: HODGKIN'S DISEASE
     Dosage: 15.5 MG/M2, UNK
     Route: 042
     Dates: start: 20110120

REACTIONS (1)
  - ODYNOPHAGIA [None]
